FAERS Safety Report 5324208-6 (Version None)
Quarter: 2007Q2

REPORT INFORMATION
  Report Type: 
  Country: None (occurrence: None)
  Receive Date: 20070514
  Receipt Date: 20070504
  Transmission Date: 20071010
  Serious: Yes (Hospitalization)
  Sender: FDA-Public Use
  Company Number: CZ-ROCHE-496375

PATIENT
  Age: 32 Year
  Sex: Female
  Weight: 74 kg

DRUGS (3)
  1. PEG-INTERFERON ALFA 2A (RO 25-8310) [Suspect]
     Route: 058
     Dates: start: 20061116, end: 20070503
  2. RIBAVIRIN [Suspect]
     Dosage: DIVIDED INTO TWO DAILY DOSES.
     Route: 048
     Dates: start: 20061116
  3. TRAMADOL HCL [Concomitant]
     Dosage: REPORTED AS TRAMADOLI HYDROCHLORIDUM.
     Dates: start: 20070429

REACTIONS (1)
  - PERIANAL ABSCESS [None]
